FAERS Safety Report 8893091 (Version 1)
Quarter: 2012Q4

REPORT INFORMATION
  Report Type: Spontaneous
  Country: US (occurrence: None)
  Receive Date: 20121106
  Receipt Date: 20121106
  Transmission Date: 20130627
  Serious: Yes (Life-Threatening)
  Sender: FDA-Public Use
  Company Number: None

PATIENT
  Age: 69 Year
  Sex: Female
  Weight: 48.99 kg

DRUGS (1)
  1. CLARITHROMYCIN [Suspect]
     Route: 048
     Dates: start: 20110307, end: 20110311

REACTIONS (3)
  - Loss of consciousness [None]
  - Faecal incontinence [None]
  - Bedridden [None]
